FAERS Safety Report 9986454 (Version 1)
Quarter: 2014Q1

REPORT INFORMATION
  Report Type: Spontaneous
  Country: US (occurrence: US)
  Receive Date: 20140307
  Receipt Date: 20140307
  Transmission Date: 20141002
  Serious: No
  Sender: FDA-Public Use
  Company Number: US-ASTRAZENECA-2014SE09315

PATIENT
  Age: 64 Year
  Sex: Male
  Weight: 88.9 kg

DRUGS (7)
  1. NEXIUM [Suspect]
     Indication: GASTROOESOPHAGEAL REFLUX DISEASE
     Route: 048
     Dates: start: 2004
  2. PRILOSEC DELAYED-RELEASE CAPSULES [Suspect]
     Indication: GASTROOESOPHAGEAL REFLUX DISEASE
     Route: 048
     Dates: end: 2004
  3. SULCRALFATE [Suspect]
     Route: 065
     Dates: start: 201401
  4. GENERIC SINGULAIR - MONTELUKAST [Concomitant]
     Indication: ASTHMA
  5. LIPITOR [Concomitant]
     Indication: BLOOD CHOLESTEROL
  6. ASPIRIN [Concomitant]
     Indication: CARDIAC DISORDER
  7. FOSINOPRIL [Concomitant]
     Indication: HYPERTENSION

REACTIONS (5)
  - Hypertension [Unknown]
  - Gastrooesophageal reflux disease [Unknown]
  - Eructation [Unknown]
  - Therapy cessation [Unknown]
  - Drug ineffective [Unknown]
